FAERS Safety Report 13152770 (Version 2)
Quarter: 2017Q1

REPORT INFORMATION
  Report Type: Spontaneous
  Country: US (occurrence: US)
  Receive Date: 20170125
  Receipt Date: 20170202
  Transmission Date: 20170428
  Serious: Yes (Other)
  Sender: FDA-Public Use
  Company Number: US-MYLANLABS-2017M1004480

PATIENT

DRUGS (1)
  1. CLOMIPRAMINE HYDROCHLORIDE CAPSULES, USP [Suspect]
     Active Substance: CLOMIPRAMINE HYDROCHLORIDE
     Indication: OBSESSIVE-COMPULSIVE DISORDER
     Dosage: 100 MG, HS
     Route: 048

REACTIONS (3)
  - Retching [Recovered/Resolved]
  - Chemical burn of gastrointestinal tract [Recovered/Resolved]
  - Sneezing [Recovered/Resolved]

NARRATIVE: CASE EVENT DATE: 201701
